FAERS Safety Report 9469296 (Version 1)
Quarter: 2013Q3

REPORT INFORMATION
  Report Type: Spontaneous
  Country: US (occurrence: None)
  Receive Date: 20130815
  Receipt Date: 20130815
  Transmission Date: 20140515
  Serious: Yes (Hospitalization)
  Sender: FDA-Public Use
  Company Number: 2013221333

PATIENT
  Age: 68 Year
  Sex: Female
  Weight: 78 kg

DRUGS (6)
  1. CIPROFLOXACIN [Suspect]
     Dates: start: 201306, end: 201306
  2. DOXYCYCLINE MONOHYDRATE [Suspect]
     Dates: start: 201306
  3. SERTRALINE HCL [Suspect]
     Dates: start: 2000
  4. ZITHROMAX [Suspect]
     Indication: CELLULITIS
     Dates: start: 20130530, end: 20130603
  5. ZYVOX [Suspect]
     Dates: start: 201306, end: 201306
  6. IMIPRAMINE [Suspect]
     Dates: start: 2000

REACTIONS (15)
  - Cellulitis [None]
  - Atrioventricular block [None]
  - Chest pain [None]
  - Anxiety [None]
  - Serotonin syndrome [None]
  - Hypertension [None]
  - Personality disorder [None]
  - Mental impairment [None]
  - Oedema [None]
  - Memory impairment [None]
  - Insomnia [None]
  - Confusional state [None]
  - Skin hypertrophy [None]
  - Drug interaction [None]
  - Drug ineffective [None]
